FAERS Safety Report 6459999-4 (Version None)
Quarter: 2009Q4

REPORT INFORMATION
  Report Type: 
  Country: None (occurrence: None)
  Receive Date: 20091129
  Receipt Date: 20091117
  Transmission Date: 20100525
  Serious: Yes (Hospitalization, Other)
  Sender: FDA-Public Use
  Company Number: PHHY2009FR51007

PATIENT
  Age: 45 Year
  Sex: Female

DRUGS (4)
  1. TEGRETOL [Suspect]
     Dosage: 1200 MG/DAY
     Dates: end: 20070831
  2. TEGRETOL [Suspect]
     Dosage: 800 MG/DAY
     Dates: start: 20090904
  3. KEPPRA [Concomitant]
     Dosage: 500 MG, BID
  4. LAMICTAL [Concomitant]
     Dosage: 50 MG, BID

REACTIONS (5)
  - BALANCE DISORDER [None]
  - CEREBRAL ATROPHY [None]
  - DIZZINESS [None]
  - DRUG LEVEL INCREASED [None]
  - GENERAL PHYSICAL HEALTH DETERIORATION [None]
